FAERS Safety Report 11809096 (Version 1)
Quarter: 2015Q4

REPORT INFORMATION
  Report Type: Spontaneous
  Country: US (occurrence: US)
  Receive Date: 20151207
  Receipt Date: 20151207
  Transmission Date: 20160305
  Serious: Yes (Death, Other)
  Sender: FDA-Public Use
  Company Number: US-ALLERGAN-1525128US

PATIENT
  Age: 90 Year
  Sex: Female

DRUGS (1)
  1. BOTULINUM TOXIN TYPE A UNK [Suspect]
     Active Substance: BOTULINUM TOXIN TYPE A
     Indication: OESOPHAGEAL ACHALASIA
     Dosage: 80 UNITS, SINGLE
     Route: 030

REACTIONS (3)
  - Off label use [Unknown]
  - Botulism [Fatal]
  - Respiratory failure [Unknown]
